FAERS Safety Report 23791047 (Version 1)
Quarter: 2024Q2

REPORT INFORMATION
  Report Type: Spontaneous
  Country: ES (occurrence: GB)
  Receive Date: 20240427
  Receipt Date: 20240427
  Transmission Date: 20240716
  Serious: Yes (Other)
  Sender: FDA-Public Use
  Company Number: GB-Breckenridge Pharmaceutical, Inc.-2153886

PATIENT
  Age: 34 Year
  Sex: Female
  Weight: 79 kg

DRUGS (1)
  1. OMEPRAZOLE [Suspect]
     Active Substance: OMEPRAZOLE
     Indication: Gastrooesophageal reflux disease
     Route: 048

REACTIONS (5)
  - Panic attack [Not Recovered/Not Resolved]
  - Sleep terror [Not Recovered/Not Resolved]
  - Tachyphrenia [Not Recovered/Not Resolved]
  - Anxiety [Not Recovered/Not Resolved]
  - Depersonalisation/derealisation disorder [Recovered/Resolved with Sequelae]
